FAERS Safety Report 7043579-6 (Version None)
Quarter: 2010Q4

REPORT INFORMATION
  Report Type: 
  Country: None (occurrence: None)
  Receive Date: 20101013
  Receipt Date: 20101005
  Transmission Date: 20110411
  Serious: Yes (Other)
  Sender: FDA-Public Use
  Company Number: A0885969A

PATIENT
  Age: 60 Year
  Sex: Female

DRUGS (9)
  1. REQUIP [Suspect]
     Dosage: 1MG PER DAY
     Route: 048
  2. LYRICA [Suspect]
     Dosage: 50MG TWICE PER DAY
     Route: 048
     Dates: start: 20100801
  3. PREDNISONE [Suspect]
     Indication: POLYMYALGIA RHEUMATICA
     Dosage: 15MGD PER DAY
     Route: 048
     Dates: start: 20070101
  4. PEXEVA [Suspect]
     Route: 065
  5. LISINOPRIL AND HYDROCHLOROTHIAZIDE [Suspect]
     Route: 065
  6. SYNTHROID [Suspect]
     Indication: HYPOTHYROIDISM
     Dosage: 137MG SEE DOSAGE TEXT
     Route: 065
  7. LASIX [Suspect]
     Dosage: 20MG PER DAY
     Route: 048
  8. FOSAMAX [Suspect]
     Indication: CALCIUM DEFICIENCY
     Dosage: 70MG WEEKLY
  9. LOVASTATIN [Suspect]
     Dosage: 40MGD PER DAY
     Route: 048

REACTIONS (8)
  - ACTIVITIES OF DAILY LIVING IMPAIRED [None]
  - DIZZINESS [None]
  - DYSKINESIA [None]
  - GAIT DISTURBANCE [None]
  - MENTAL IMPAIRMENT [None]
  - MUSCULAR WEAKNESS [None]
  - SYSTEMIC LUPUS ERYTHEMATOSUS [None]
  - TREMOR [None]
